FAERS Safety Report 13691853 (Version 1)
Quarter: 2017Q2

REPORT INFORMATION
  Report Type: Report from Study
  Country: US (occurrence: US)
  Receive Date: 20170626
  Receipt Date: 20170626
  Transmission Date: 20170830
  Serious: Yes (Other)
  Sender: FDA-Public Use
  Company Number: US-BEH-2017081550

PATIENT
  Age: 56 Year
  Sex: Male

DRUGS (3)
  1. PROTHROMBIN COMPLEX CONCENTRATE NOS [Suspect]
     Active Substance: COAGULATION FACTOR IX HUMAN\COAGULATION FACTOR VII HUMAN\COAGULATION FACTOR X HUMAN\PROTHROMBIN
     Indication: COAGULATION TEST ABNORMAL
     Route: 065
  2. LACTULOSE. [Concomitant]
     Active Substance: LACTULOSE
     Route: 065
  3. RIFAXIMIN [Concomitant]
     Active Substance: RIFAXIMIN

REACTIONS (4)
  - Epistaxis [Unknown]
  - Haematoma [Unknown]
  - Catheter site discharge [Unknown]
  - Disseminated intravascular coagulation [Unknown]
